FAERS Safety Report 6497565-5 (Version None)
Quarter: 2009Q4

REPORT INFORMATION
  Report Type: 
  Country: None (occurrence: None)
  Receive Date: 20091215
  Receipt Date: 20091202
  Transmission Date: 20100525
  Serious: Yes (Hospitalization)
  Sender: FDA-Public Use
  Company Number: US-ELI_LILLY_AND_COMPANY-US200912000911

PATIENT
  Sex: Female

DRUGS (8)
  1. FORTEO [Suspect]
     Dosage: 20 UG, DAILY (1/D)
     Dates: start: 20081201, end: 20091124
  2. FORTEO [Suspect]
     Dosage: 20 UG, DAILY (1/D)
     Dates: start: 20091128
  3. CYMBALTA [Suspect]
     Indication: DEPRESSION
     Dosage: 120 MG, DAILY (1/D)
  4. SINGULAIR [Concomitant]
     Dosage: UNK, UNKNOWN
  5. PROTONIX [Concomitant]
     Dosage: UNK, UNKNOWN
  6. PERCOCET [Concomitant]
     Dosage: UNK, UNKNOWN
  7. OMEPRAZOLE [Concomitant]
     Dosage: UNK, UNKNOWN
  8. ONDANSETRON [Concomitant]
     Dosage: UNK, UNKNOWN

REACTIONS (2)
  - ANKLE OPERATION [None]
  - SURGERY [None]
